FAERS Safety Report 4497936-2 (Version None)
Quarter: 2004Q4

REPORT INFORMATION
  Report Type: 
  Country: None (occurrence: None)
  Receive Date: 20041105
  Receipt Date: 20041025
  Transmission Date: 20050328
  Serious: Yes (Disabling)
  Sender: FDA-Public Use
  Company Number: 0104-1940

PATIENT
  Sex: Male

DRUGS (1)
  1. ADVICOR [Suspect]

REACTIONS (5)
  - APATHY [None]
  - ARTHRALGIA [None]
  - ASTHENIA [None]
  - INFLUENZA LIKE ILLNESS [None]
  - MYALGIA [None]
